FAERS Safety Report 17105776 (Version 1)
Quarter: 2019Q4

REPORT INFORMATION
  Report Type: Spontaneous
  Country: CN (occurrence: CN)
  Receive Date: 20191203
  Receipt Date: 20191203
  Transmission Date: 20200122
  Serious: Yes (Hospitalization)
  Sender: FDA-Public Use
  Company Number: CN-BAXTER-2019BAX024241

PATIENT
  Age: 26 Year
  Sex: Male
  Weight: 67 kg

DRUGS (4)
  1. 0.9% SODIUM CHLORIDE INJECTION [Suspect]
     Active Substance: SODIUM CHLORIDE
     Dosage: ENDOXAN 4020 MG + 0.9% SODIUM CHLORIDE 500 ML
     Route: 041
     Dates: start: 20191118, end: 20191119
  2. 0.9% SODIUM CHLORIDE INJECTION [Suspect]
     Active Substance: SODIUM CHLORIDE
     Indication: MEDICATION DILUTION
     Dosage: BUSULFEX 53.6 MG + 0.9% SODIUM CHLORIDE 100 ML
     Route: 041
     Dates: start: 20191113, end: 20191117
  3. ENDOXAN [Suspect]
     Active Substance: CYCLOPHOSPHAMIDE
     Indication: BONE MARROW CONDITIONING REGIMEN
     Dosage: ENDOXAN 4020 MG + 0.9% SODIUM CHLORIDE 500 ML
     Route: 041
     Dates: start: 20191118, end: 20191119
  4. BUSULFEX [Suspect]
     Active Substance: BUSULFAN
     Indication: BONE MARROW CONDITIONING REGIMEN
     Dosage: BUSULFEX 53.6 MG + 0.9% SODIUM CHLORIDE 100 ML
     Route: 041
     Dates: start: 20191113, end: 20191117

REACTIONS (2)
  - Neutropenia [Unknown]
  - Leukopenia [Unknown]

NARRATIVE: CASE EVENT DATE: 20191118
